FAERS Safety Report 9435275 (Version 1)
Quarter: 2013Q3

REPORT INFORMATION
  Report Type: Spontaneous
  Country: US (occurrence: US)
  Receive Date: 20130801
  Receipt Date: 20130801
  Transmission Date: 20140515
  Serious: No
  Sender: FDA-Public Use
  Company Number: US-BAUSCH-BL-2013-003026

PATIENT
  Age: 88 Year
  Sex: Male

DRUGS (4)
  1. DORZOLAMIDE HYDROCHLORIDE AND TIMOLOL MALEATE OPHTHALMIC SOLUTION 2%/0 [Suspect]
     Indication: GLAUCOMA
     Dosage: ONE DROP INTO RIGHT EYE TWICE DAILY
     Route: 047
     Dates: start: 20130422
  2. DORZOLAMIDE HYDROCHLORIDE AND TIMOLOL MALEATE OPHTHALMIC SOLUTION 2%/0 [Suspect]
     Dosage: ONE DROP INTO LEFT EYE TWICE DAILY
     Route: 047
     Dates: start: 20130422
  3. LUMIGAN [Concomitant]
     Indication: GLAUCOMA
  4. ALPHAGAN [Concomitant]
     Indication: GLAUCOMA

REACTIONS (1)
  - Instillation site pain [Not Recovered/Not Resolved]
